FAERS Safety Report 18541262 (Version 1)
Quarter: 2020Q4

REPORT INFORMATION
  Report Type: Spontaneous
  Country: NL (occurrence: NL)
  Receive Date: 20201124
  Receipt Date: 20201124
  Transmission Date: 20210114
  Serious: Yes (Hospitalization)
  Sender: FDA-Public Use
  Company Number: NL-ROCHE-2718518

PATIENT
  Sex: Male
  Weight: 70 kg

DRUGS (4)
  1. TACROLIMUS. [Concomitant]
     Active Substance: TACROLIMUS
     Dosage: 2X2MG
  2. RIBAVIRIN. [Suspect]
     Active Substance: RIBAVIRIN
     Indication: HEPATITIS E
     Route: 065
     Dates: start: 2017
  3. RISPERIDONE. [Concomitant]
     Active Substance: RISPERIDONE
     Dosage: OMHULDE TABLET, 2 MG (MILLIGRAM)
  4. CELLCEPT [Concomitant]
     Active Substance: MYCOPHENOLATE MOFETIL\MYCOPHENOLATE MOFETIL HYDROCHLORIDE
     Dosage: 2X750MG
     Route: 048

REACTIONS (7)
  - Delusion of reference [Recovered/Resolved]
  - Speech disorder [Unknown]
  - Chills [Unknown]
  - Hyperacusis [Unknown]
  - Hostility [Unknown]
  - Anxiety [Unknown]
  - Paranoia [Recovered/Resolved]
